FAERS Safety Report 6340452-3 (Version None)
Quarter: 2009Q3

REPORT INFORMATION
  Report Type: 
  Country: None (occurrence: None)
  Receive Date: 20090904
  Receipt Date: 20090827
  Transmission Date: 20100115
  Serious: Yes (Other)
  Sender: FDA-Public Use
  Company Number: GB-JNJFOC-20090604866

PATIENT
  Age: 57 Year
  Sex: Male

DRUGS (4)
  1. REMICADE [Suspect]
     Dosage: 3RD DOSE
     Route: 042
  2. REMICADE [Suspect]
     Dosage: 2ND DOSE
     Route: 042
  3. REMICADE [Suspect]
     Indication: COLITIS ULCERATIVE
     Dosage: 1ST DOSE
     Route: 042
  4. AZATHIOPRINE [Concomitant]
     Dosage: TREATED FOR 6 MONTHS

REACTIONS (1)
  - TUBERCULOSIS [None]
